FAERS Safety Report 5182716-5 (Version None)
Quarter: 2006Q4

REPORT INFORMATION
  Report Type: 
  Country: None (occurrence: None)
  Receive Date: 20061220
  Receipt Date: 20051107
  Transmission Date: 20070319
  Serious: No
  Sender: FDA-Public Use
  Company Number: US-GLAXOSMITHKLINE-A0581166A

PATIENT
  Age: 55 Year
  Sex: Female

DRUGS (2)
  1. MEMBERS MARK NTS ORIGINAL, 21MG [Suspect]
     Dates: start: 20051019
  2. NICORETTE [Suspect]

REACTIONS (3)
  - ABNORMAL DREAMS [None]
  - GLOSSITIS [None]
  - GLOSSODYNIA [None]
